FAERS Safety Report 25658259 (Version 3)
Quarter: 2025Q3

REPORT INFORMATION
  Report Type: Report from Study
  Country: US (occurrence: US)
  Receive Date: 20250808
  Receipt Date: 20250905
  Transmission Date: 20251021
  Serious: No
  Sender: SUNOVION
  Company Number: US-SUMITOMO PHARMA SWITZERLAND GMBH-2025SPA009054

PATIENT
  Age: 58 Year
  Sex: Male

DRUGS (13)
  1. ORGOVYX [Suspect]
     Active Substance: RELUGOLIX
     Indication: Prostate cancer
     Route: 048
     Dates: start: 20250617, end: 20250617
  2. ORGOVYX [Suspect]
     Active Substance: RELUGOLIX
     Route: 048
  3. BUSPIRONE HCL [Concomitant]
     Active Substance: BUSPIRONE HYDROCHLORIDE
  4. MAGNESIUM [Concomitant]
     Active Substance: MAGNESIUM
  5. ELIQUIS [Concomitant]
     Active Substance: APIXABAN
  6. FARXIGA [Concomitant]
     Active Substance: DAPAGLIFLOZIN PROPANEDIOL
  7. FLECAINIDE ACETATE [Concomitant]
     Active Substance: FLECAINIDE ACETATE
  8. LISINOPRIL [Concomitant]
     Active Substance: LISINOPRIL
  9. POTASSIUM [Concomitant]
     Active Substance: POTASSIUM
  10. DILTIAZEM HYDROCHLORIDE [Concomitant]
     Active Substance: DILTIAZEM HYDROCHLORIDE
  11. Turmeric complex [Concomitant]
  12. ROSUVASTATIN [Concomitant]
     Active Substance: ROSUVASTATIN
  13. TAMSULOSIN [Concomitant]
     Active Substance: TAMSULOSIN

REACTIONS (5)
  - Hepatic enzyme increased [Unknown]
  - Hepatic function abnormal [Unknown]
  - Dizziness [Unknown]
  - Hot flush [Unknown]
  - Fatigue [Unknown]
